FAERS Safety Report 8816138 (Version 1)
Quarter: 2012Q4

REPORT INFORMATION
  Report Type: Report from Study
  Country: IT (occurrence: IT)
  Receive Date: 20120929
  Receipt Date: 20120929
  Transmission Date: 20130627
  Serious: Yes (Hospitalization)
  Sender: FDA-Public Use
  Company Number: IT-009507513-1209ITA010708

PATIENT
  Age: 46 Year
  Sex: Female

DRUGS (1)
  1. REMERON [Suspect]
     Indication: DRUG ABUSE
     Dosage: 30 mg, Frequency: Once (total)
     Route: 048
     Dates: start: 20120910, end: 20120910

REACTIONS (2)
  - Drug abuse [Recovering/Resolving]
  - Confusional state [Recovering/Resolving]
